FAERS Safety Report 4398287-7 (Version None)
Quarter: 2004Q3

REPORT INFORMATION
  Report Type: 
  Country: None (occurrence: None)
  Receive Date: 20040712
  Receipt Date: 20040630
  Transmission Date: 20050211
  Serious: Yes (Other)
  Sender: FDA-Public Use
  Company Number: CA-2004-028113

PATIENT

DRUGS (1)
  1. FLUDARA [Suspect]

REACTIONS (3)
  - MYELITIS [None]
  - NEUROPATHY PERIPHERAL [None]
  - NEUROTOXICITY [None]
